FAERS Safety Report 7214816-X (Version None)
Quarter: 2011Q1

REPORT INFORMATION
  Report Type: 
  Country: None (occurrence: None)
  Receive Date: 20110107
  Receipt Date: 20100311
  Transmission Date: 20110831
  Serious: No
  Sender: FDA-Public Use
  Company Number: A0849710A

PATIENT
  Age: 56 Year
  Sex: Female

DRUGS (10)
  1. ASPIRIN [Concomitant]
  2. METFORMIN [Concomitant]
  3. BENAZEPRIL [Concomitant]
  4. AZELEX [Concomitant]
  5. LEVOXYL [Concomitant]
  6. AMLODIPINE BESYLATE [Concomitant]
  7. METOPROLOL TARTRATE [Concomitant]
  8. CRESTOR [Concomitant]
  9. BACTROBAN [Concomitant]
  10. LOVAZA [Suspect]
     Dosage: 4CAP PER DAY
     Route: 048
     Dates: start: 20090101

REACTIONS (1)
  - DYSPNOEA [None]
